FAERS Safety Report 25646259 (Version 2)
Quarter: 2025Q3

REPORT INFORMATION
  Report Type: Report from Study
  Country: CA (occurrence: CA)
  Receive Date: 20250805
  Receipt Date: 20250830
  Transmission Date: 20251021
  Serious: Yes (Disabling, Other)
  Sender: UCB
  Company Number: CA-UCBSA-2025047278

PATIENT
  Sex: Female

DRUGS (3)
  1. ROTIGOTINE [Suspect]
     Active Substance: ROTIGOTINE
     Indication: Restless legs syndrome
     Dosage: 3 MILLIGRAM, ONCE DAILY (QD)
     Route: 062
     Dates: start: 2019
  2. COVID-19 VACCINE NOS [Suspect]
     Active Substance: COVID-19 VACCINE
     Indication: Product used for unknown indication
  3. CARBIDOPA AND LEVODOPA [Concomitant]
     Active Substance: CARBIDOPA\LEVODOPA
     Indication: Restless legs syndrome

REACTIONS (18)
  - Multiple sclerosis relapse [Unknown]
  - Deep vein thrombosis [Unknown]
  - Pulmonary embolism [Unknown]
  - Dermatitis exfoliative [Unknown]
  - Pneumothorax [Unknown]
  - Diastolic dysfunction [Unknown]
  - Condition aggravated [Unknown]
  - Diarrhoea [Unknown]
  - Nausea [Unknown]
  - Contusion [Unknown]
  - Herpes zoster [Unknown]
  - Diplopia [Unknown]
  - Astigmatism [Unknown]
  - Haematuria [Unknown]
  - Parosmia [Recovered/Resolved]
  - Application site inflammation [Recovering/Resolving]
  - Application site pruritus [Recovering/Resolving]
  - Application site pain [Recovering/Resolving]

NARRATIVE: CASE EVENT DATE: 20240101
